FAERS Safety Report 13516958 (Version 4)
Quarter: 2018Q1

REPORT INFORMATION
  Report Type: Spontaneous
  Country: US (occurrence: US)
  Receive Date: 20170505
  Receipt Date: 20180228
  Transmission Date: 20180508
  Serious: No
  Sender: FDA-Public Use
  Company Number: US-PFIZER INC-2017192423

PATIENT
  Sex: Female

DRUGS (1)
  1. DEXTROSE. [Suspect]
     Active Substance: DEXTROSE
     Dosage: UNK
     Dates: start: 201701

REACTIONS (2)
  - Headache [Unknown]
  - Pain [Unknown]
